FAERS Safety Report 18203306 (Version 1)
Quarter: 2020Q3

REPORT INFORMATION
  Report Type: Spontaneous
  Country: IE (occurrence: IE)
  Receive Date: 20200827
  Receipt Date: 20200827
  Transmission Date: 20201103
  Serious: Yes (Other)
  Sender: FDA-Public Use
  Company Number: IE-FRESENIUS KABI-FK202008680

PATIENT
  Age: 32 Year
  Sex: Male

DRUGS (23)
  1. BLEOMYCIN [Suspect]
     Active Substance: BLEOMYCIN SULFATE
     Indication: HODGKIN^S DISEASE
     Route: 065
  2. DOXORUBICIN [Suspect]
     Active Substance: DOXORUBICIN
     Indication: HODGKIN^S DISEASE
     Route: 065
  3. VINCRISTINE SULFATE. [Suspect]
     Active Substance: VINCRISTINE SULFATE
     Indication: HODGKIN^S DISEASE
     Route: 065
  4. CYCLOPHOSPHAMIDE. [Suspect]
     Active Substance: CYCLOPHOSPHAMIDE
     Indication: HODGKIN^S DISEASE
     Route: 065
  5. PHENOXYMETHYLPENICILLIN [Concomitant]
     Active Substance: PENICILLIN V
     Indication: GRAFT VERSUS HOST DISEASE
     Route: 065
  6. PREDNISOLONE. [Concomitant]
     Active Substance: PREDNISOLONE
     Indication: GRAFT VERSUS HOST DISEASE
     Route: 065
  7. CARBOPLATIN (MANUFACTURER UNKNOWN) [Suspect]
     Active Substance: CARBOPLATIN
     Indication: HODGKIN^S DISEASE
     Route: 065
  8. DOXORUBICIN HYDROCHLORIDE. [Suspect]
     Active Substance: DOXORUBICIN HYDROCHLORIDE
     Indication: HODGKIN^S DISEASE
     Route: 065
  9. BRENTUXIMAB VEDOTIN [Suspect]
     Active Substance: BRENTUXIMAB VEDOTIN
     Indication: HODGKIN^S DISEASE
     Route: 065
  10. CARMUSTINE. [Suspect]
     Active Substance: CARMUSTINE
     Indication: BONE MARROW CONDITIONING REGIMEN
     Route: 065
  11. CICLOSPORIN [Concomitant]
     Active Substance: CYCLOSPORINE
     Indication: GRAFT VERSUS HOST DISEASE
     Route: 065
  12. CYTARABINE (MANUFACTURER UNKNOWN) [Suspect]
     Active Substance: CYTARABINE
     Indication: HODGKIN^S DISEASE
     Route: 065
  13. ALEMTUZUMAB [Suspect]
     Active Substance: ALEMTUZUMAB
     Indication: BONE MARROW CONDITIONING REGIMEN
     Route: 065
  14. VINBLASTINE [Suspect]
     Active Substance: VINBLASTINE
     Indication: HODGKIN^S DISEASE
     Route: 065
  15. DACARBAZINE. [Suspect]
     Active Substance: DACARBAZINE
     Indication: HODGKIN^S DISEASE
     Route: 065
  16. PROCARBAZINE [Suspect]
     Active Substance: PROCARBAZINE
     Indication: HODGKIN^S DISEASE
     Route: 065
  17. ETOPOSIDE (MANUFACTURER UNKNOWN) [Suspect]
     Active Substance: ETOPOSIDE
     Indication: HODGKIN^S DISEASE
     Route: 065
  18. CYTARABINE/MELPHALAN/CARMUSTINE/ETOPOSIDE [Suspect]
     Active Substance: CARMUSTINE\CYTARABINE\ETOPOSIDE\MELPHALAN
     Indication: BONE MARROW CONDITIONING REGIMEN
     Route: 065
  19. VALACICLOVIR [Concomitant]
     Active Substance: VALACYCLOVIR HYDROCHLORIDE
     Indication: GRAFT VERSUS HOST DISEASE
     Route: 065
  20. ATOVAQUONE. [Concomitant]
     Active Substance: ATOVAQUONE
     Indication: GRAFT VERSUS HOST DISEASE
     Route: 065
  21. BLEOMYCIN [Suspect]
     Active Substance: BLEOMYCIN SULFATE
     Indication: HODGKIN^S DISEASE
     Route: 065
  22. PREDNISOLONE. [Suspect]
     Active Substance: PREDNISOLONE
     Indication: HODGKIN^S DISEASE
     Route: 065
  23. IFOSFAMIDE. [Suspect]
     Active Substance: IFOSFAMIDE
     Indication: HODGKIN^S DISEASE
     Route: 065

REACTIONS (2)
  - Acanthamoeba infection [Recovered/Resolved]
  - Encephalitis protozoal [Recovered/Resolved]
